FAERS Safety Report 8134972-9 (Version None)
Quarter: 2012Q1

REPORT INFORMATION
  Report Type: 
  Country: None (occurrence: None)
  Receive Date: 20120214
  Receipt Date: 20120207
  Transmission Date: 20120608
  Serious: Yes (Death)
  Sender: FDA-Public Use
  Company Number: PHHY2012EC010674

PATIENT
  Sex: Female

DRUGS (1)
  1. GENTEAL [Suspect]
     Dosage: UNK UKN, UNK
     Dates: start: 20090108

REACTIONS (1)
  - DEATH [None]
